FAERS Safety Report 6021213-1 (Version None)
Quarter: 2008Q4

REPORT INFORMATION
  Report Type: 
  Country: None (occurrence: None)
  Receive Date: 20081222
  Receipt Date: 20081216
  Transmission Date: 20090506
  Serious: Yes (Other)
  Sender: FDA-Public Use
  Company Number: 2008120027

PATIENT
  Age: 31 Year
  Sex: Male

DRUGS (1)
  1. PENICILLAMINE [Suspect]
     Indication: HEPATO-LENTICULAR DEGENERATION
     Dosage: ORAL; AT  AGE 31
     Route: 048

REACTIONS (2)
  - PLEURAL EFFUSION [None]
  - PYREXIA [None]
